FAERS Safety Report 25353684 (Version 2)
Quarter: 2025Q2

REPORT INFORMATION
  Report Type: Spontaneous
  Country: CH (occurrence: CH)
  Receive Date: 20250523
  Receipt Date: 20250602
  Transmission Date: 20250716
  Serious: No
  Sender: UCB
  Company Number: CH-UCBSA-2025028911

PATIENT
  Sex: Female

DRUGS (1)
  1. NEUPRO [Suspect]
     Active Substance: ROTIGOTINE
     Indication: Parkinson^s disease
     Dosage: ONE 1 MG PATCH (BATCH NUMBER: 61917902) AND ONE 2 MG PATCH (BATCH NUMBER: 61912202) (TOTAL 3 MG)
     Route: 062
     Dates: start: 2011

REACTIONS (1)
  - Product adhesion issue [Unknown]
